FAERS Safety Report 16525234 (Version 2)
Quarter: 2019Q3

REPORT INFORMATION
  Report Type: Spontaneous
  Country: ES (occurrence: ES)
  Receive Date: 20190703
  Receipt Date: 20190708
  Transmission Date: 20191004
  Serious: Yes (Other)
  Sender: FDA-Public Use
  Company Number: ES-PFIZER INC-2019281296

PATIENT
  Age: 21 Year
  Sex: Male

DRUGS (6)
  1. IRON [Concomitant]
     Active Substance: IRON
     Indication: SUPPLEMENTATION THERAPY
     Dosage: UNK
     Route: 042
  2. SIROLIMUS. [Suspect]
     Active Substance: SIROLIMUS
     Indication: ANAEMIA
     Dosage: 3.5 G, DAILY
     Dates: start: 2017
  3. IRON [Concomitant]
     Active Substance: IRON
     Indication: ANAEMIA
     Dosage: UNK
     Route: 051
  4. SIROLIMUS. [Suspect]
     Active Substance: SIROLIMUS
     Indication: MALFORMATION VENOUS
     Dosage: 5 MG, DAILY (0.07 MG/KG/DAY)
     Dates: start: 2017
  5. OCTREOTIDE. [Concomitant]
     Active Substance: OCTREOTIDE
     Indication: ANAEMIA
     Dosage: 20 G, MONTHLY
  6. OCTREOTIDE. [Concomitant]
     Active Substance: OCTREOTIDE
     Indication: MALFORMATION VENOUS
     Dosage: 20 G, MONTHLY
     Dates: start: 2011, end: 201408

REACTIONS (4)
  - Product use in unapproved indication [Unknown]
  - Off label use [Unknown]
  - Disease recurrence [Recovered/Resolved]
  - Osteonecrosis [Recovered/Resolved]

NARRATIVE: CASE EVENT DATE: 2017
